FAERS Safety Report 23614676 (Version 2)
Quarter: 2024Q1

REPORT INFORMATION
  Report Type: Report from Study
  Country: US (occurrence: US)
  Receive Date: 20240311
  Receipt Date: 20240313
  Transmission Date: 20240410
  Serious: Yes (Hospitalization)
  Sender: FDA-Public Use
  Company Number: US-ABBVIE-5671606

PATIENT
  Sex: Female
  Weight: 63.502 kg

DRUGS (2)
  1. HUMIRA [Suspect]
     Active Substance: ADALIMUMAB
     Indication: Crohn^s disease
     Dosage: START DATE TEXT: BEFORE 2020?FORM STRENGTH: 40 MILLIGRAM
     Route: 058
     Dates: end: 202306
  2. POTASSIUM [Concomitant]
     Active Substance: POTASSIUM
     Indication: Mineral supplementation

REACTIONS (1)
  - Crohn^s disease [Not Recovered/Not Resolved]

NARRATIVE: CASE EVENT DATE: 20230101
